FAERS Safety Report 12728627 (Version 1)
Quarter: 2016Q3

REPORT INFORMATION
  Report Type: Spontaneous
  Country: US (occurrence: US)
  Receive Date: 20160909
  Receipt Date: 20160909
  Transmission Date: 20161109
  Serious: Yes (Hospitalization)
  Sender: FDA-Public Use
  Company Number: None

PATIENT
  Age: 18 Year
  Sex: Female

DRUGS (1)
  1. SODIUM CHLORIDE 3% [Suspect]
     Active Substance: SODIUM CHLORIDE
     Indication: BRONCHITIS BACTERIAL
     Dosage: 4 MLS Q6HS NEB

REACTIONS (1)
  - Ankle operation [None]

NARRATIVE: CASE EVENT DATE: 20160907
